FAERS Safety Report 6332258-6 (Version None)
Quarter: 2009Q3

REPORT INFORMATION
  Report Type: 
  Country: None (occurrence: None)
  Receive Date: 20090828
  Receipt Date: 20090819
  Transmission Date: 20100115
  Serious: Yes (Other)
  Sender: FDA-Public Use
  Company Number: JP-ASTRAZENECA-2009SE08039

PATIENT
  Age: 57 Year
  Sex: Male

DRUGS (7)
  1. SEROQUEL [Suspect]
     Route: 048
  2. GASTER [Suspect]
     Route: 048
  3. MYSLEE [Suspect]
     Route: 048
  4. CISPLATIN [Suspect]
     Route: 065
  5. TAXOL [Suspect]
     Route: 065
  6. FLUOROURACIL [Suspect]
     Route: 065
  7. VITAMEDIN [Concomitant]

REACTIONS (1)
  - DIABETES INSIPIDUS [None]
